FAERS Safety Report 9651922 (Version 2)
Quarter: 2013Q4

REPORT INFORMATION
  Report Type: Spontaneous
  Country: US (occurrence: US)
  Receive Date: 20131029
  Receipt Date: 20131108
  Transmission Date: 20140711
  Serious: Yes (Other)
  Sender: FDA-Public Use
  Company Number: US-PFIZER INC-2013306144

PATIENT
  Sex: 0

DRUGS (1)
  1. PHENYTOIN [Suspect]
     Dosage: UNK

REACTIONS (2)
  - Toxicity to various agents [Recovering/Resolving]
  - Anticonvulsant drug level increased [Recovering/Resolving]
